FAERS Safety Report 22137560 (Version 1)
Quarter: 2023Q1

REPORT INFORMATION
  Report Type: Spontaneous
  Country: GR (occurrence: GR)
  Receive Date: 20230325
  Receipt Date: 20230325
  Transmission Date: 20230418
  Serious: Yes (Other)
  Sender: FDA-Public Use
  Company Number: GR-FreseniusKabi-FK202303592

PATIENT
  Age: 75 Year
  Sex: Female

DRUGS (1)
  1. AMIKACIN [Suspect]
     Active Substance: AMIKACIN
     Indication: Bacterial endophthalmitis
     Route: 065

REACTIONS (2)
  - Retinal toxicity [Not Recovered/Not Resolved]
  - Incorrect route of product administration [Unknown]
